FAERS Safety Report 9169913 (Version 2)
Quarter: 2013Q4

REPORT INFORMATION
  Report Type: Report from Study
  Country: FR (occurrence: FR)
  Receive Date: 20130319
  Receipt Date: 20131007
  Transmission Date: 20140711
  Serious: Yes (Other)
  Sender: FDA-Public Use
  Company Number: FR-BIOGENIDEC-2012BI046049

PATIENT
  Age: 42 Year
  Sex: Female
  Weight: 50 kg

DRUGS (16)
  1. TYSABRI [Suspect]
     Indication: MULTIPLE SCLEROSIS
     Route: 042
     Dates: start: 20081205
  2. DEBRIDAT [Concomitant]
     Route: 048
  3. LIORESAL [Concomitant]
     Indication: MUSCLE SPASTICITY
     Route: 048
     Dates: start: 1996
  4. CIFLOX [Concomitant]
     Indication: URINARY TRACT INFECTION
     Dates: start: 20120701, end: 20120901
  5. MYOLASTAN [Concomitant]
     Indication: MUSCLE SPASTICITY
     Route: 048
     Dates: start: 200509
  6. DANTRIUM [Concomitant]
     Indication: MUSCLE SPASTICITY
     Route: 048
     Dates: start: 200012
  7. PROZAC [Concomitant]
     Indication: DEPRESSION
     Route: 048
     Dates: start: 199906
  8. NUREFLEX [Concomitant]
     Indication: MIGRAINE
     Route: 048
     Dates: start: 199809
  9. NUREFLEX [Concomitant]
     Indication: HEADACHE
     Route: 048
     Dates: start: 199809
  10. FOSAMAX [Concomitant]
     Indication: OSTEOPOROSIS
     Dates: start: 200606
  11. CALTRATE D3 [Concomitant]
     Indication: OSTEOPOROSIS
     Route: 048
     Dates: start: 200606
  12. VITAMIN B12 [Concomitant]
     Route: 048
     Dates: start: 200510
  13. TRINORDIOL [Concomitant]
     Indication: CONTRACEPTION
  14. IMODIUM [Concomitant]
     Indication: DIARRHOEA
     Route: 048
     Dates: start: 20110617
  15. XATRAL [Concomitant]
     Indication: URINARY RETENTION
     Route: 048
     Dates: start: 20120907
  16. FURADANTINE [Concomitant]
     Indication: INFECTION PROPHYLAXIS
     Route: 048
     Dates: start: 20120907

REACTIONS (1)
  - Herpes zoster [Recovered/Resolved]
